FAERS Safety Report 4641219-4 (Version None)
Quarter: 2005Q2

REPORT INFORMATION
  Report Type: 
  Country: None (occurrence: None)
  Receive Date: 20050419
  Receipt Date: 20050419
  Transmission Date: 20051028
  Serious: Yes (Hospitalization)
  Sender: FDA-Public Use
  Company Number: None

PATIENT
  Age: 81 Year
  Sex: Female

DRUGS (2)
  1. LAMICTAL [Suspect]
     Indication: SCHIZOAFFECTIVE DISORDER
     Dosage: 50 MG AM AND HS
     Dates: start: 20050214, end: 20050414
  2. SEROQUEL [Suspect]
     Indication: SCHIZOAFFECTIVE DISORDER
     Dosage: 25 MG AM AND 200 MG HS
     Dates: start: 20050215, end: 20050414

REACTIONS (2)
  - DRY SKIN [None]
  - DYSTONIA [None]
